FAERS Safety Report 4435321-X (Version None)
Quarter: 2004Q3

REPORT INFORMATION
  Report Type: 
  Country: None (occurrence: None)
  Receive Date: 20040826
  Receipt Date: 20040818
  Transmission Date: 20050211
  Serious: Yes (Death)
  Sender: FDA-Public Use
  Company Number: 2004JP001474

PATIENT
  Age: 45 Year
  Sex: Male

DRUGS (3)
  1. TACROLIMUS CAPSULES (TACROLIMUS CAPSULES) [Suspect]
     Indication: RENAL TRANSPLANT
     Dosage: 3.50 MG, BID, ORAL : 4.00 MG, BID, ORAL : 4.50 MG, BID , ORAL
     Route: 048
     Dates: start: 19970123, end: 19970126
  2. TACROLIMUS CAPSULES (TACROLIMUS CAPSULES) [Suspect]
     Indication: RENAL TRANSPLANT
     Dosage: 3.50 MG, BID, ORAL : 4.00 MG, BID, ORAL : 4.50 MG, BID , ORAL
     Route: 048
     Dates: start: 19970127, end: 19970127
  3. TACROLIMUS CAPSULES (TACROLIMUS CAPSULES) [Suspect]
     Indication: RENAL TRANSPLANT
     Dosage: 3.50 MG, BID, ORAL : 4.00 MG, BID, ORAL : 4.50 MG, BID , ORAL
     Route: 048
     Dates: start: 19970128, end: 20001214

REACTIONS (2)
  - DIPLOPIA [None]
  - LUNG NEOPLASM MALIGNANT [None]
